FAERS Safety Report 13839862 (Version 1)
Quarter: 2017Q3

REPORT INFORMATION
  Report Type: Spontaneous
  Country: US (occurrence: US)
  Receive Date: 20170805
  Receipt Date: 20170805
  Transmission Date: 20171127
  Serious: No
  Sender: FDA-Public Use
  Company Number: None

PATIENT
  Age: 62 Year
  Sex: Male

DRUGS (1)
  1. HEPARIN [Suspect]
     Active Substance: HEPARIN SODIUM
     Indication: ANTICOAGULANT THERAPY
     Dosage: 1000 UNITS/HR CONTINUOUS IV
     Route: 042
     Dates: start: 20170124, end: 20170129

REACTIONS (5)
  - Abdominal discomfort [None]
  - Retroperitoneal haematoma [None]
  - Haemoglobin decreased [None]
  - Hypotension [None]
  - Ascites [None]

NARRATIVE: CASE EVENT DATE: 20170129
